FAERS Safety Report 10337887 (Version 1)
Quarter: 2014Q3

REPORT INFORMATION
  Report Type: Spontaneous
  Country: US (occurrence: None)
  Receive Date: 20140723
  Receipt Date: 20140723
  Transmission Date: 20150326
  Serious: No
  Sender: FDA-Public Use
  Company Number: None

PATIENT

DRUGS (2)
  1. NARCAN [Suspect]
     Active Substance: NALOXONE HYDROCHLORIDE
  2. NARCAN [Suspect]
     Active Substance: NALOXONE HYDROCHLORIDE

REACTIONS (1)
  - Incorrect dose administered [None]
